FAERS Safety Report 5301907-3 (Version None)
Quarter: 2007Q2

REPORT INFORMATION
  Report Type: 
  Country: None (occurrence: None)
  Receive Date: 20070419
  Receipt Date: 20070410
  Transmission Date: 20071010
  Serious: Yes (Hospitalization)
  Sender: FDA-Public Use
  Company Number: PHBS2007AR06387

PATIENT
  Age: 10 Year
  Sex: Female

DRUGS (5)
  1. RELIVERAN [Suspect]
     Indication: VOMITING
     Dosage: 1 AMPOULE
     Route: 065
     Dates: start: 20070402, end: 20070402
  2. RELIVERAN [Suspect]
     Dosage: 3 AMPOULES
     Route: 042
     Dates: start: 20070403, end: 20070403
  3. SODIUM CHLORIDE [Concomitant]
     Route: 042
     Dates: start: 20070403
  4. FOSFOMYCIN [Concomitant]
     Indication: BACTERAEMIA
     Dosage: UNK, UNK
     Route: 048
     Dates: start: 20070403
  5. VOLTAREN [Suspect]
     Dates: start: 20070403

REACTIONS (4)
  - DYSKINESIA [None]
  - EXTRAPYRAMIDAL DISORDER [None]
  - HYPOTONIA [None]
  - OCULOGYRATION [None]
